FAERS Safety Report 16633499 (Version 1)
Quarter: 2019Q3

REPORT INFORMATION
  Report Type: Spontaneous
  Country: US (occurrence: US)
  Receive Date: 20190725
  Receipt Date: 20190725
  Transmission Date: 20191004
  Serious: Yes (Death, Life-Threatening, Hospitalization)
  Sender: FDA-Public Use
  Company Number: None

PATIENT
  Age: 55 Year
  Sex: Male
  Weight: 144.4 kg

DRUGS (1)
  1. SEGLUROMET [Suspect]
     Active Substance: ERTUGLIFLOZIN PIDOLATE\METFORMIN HYDROCHLORIDE
     Indication: TYPE 2 DIABETES MELLITUS
     Route: 048
     Dates: start: 20190412, end: 20190610

REACTIONS (14)
  - Acute kidney injury [None]
  - Hypovolaemia [None]
  - Syncope [None]
  - Nausea [None]
  - Lactic acidosis [None]
  - Low density lipoprotein increased [None]
  - Fall [None]
  - Acute myocardial infarction [None]
  - Hypophagia [None]
  - Urinary tract infection [None]
  - Dizziness [None]
  - Decreased appetite [None]
  - Orthostatic hypotension [None]
  - Malaise [None]

NARRATIVE: CASE EVENT DATE: 20190412
